FAERS Safety Report 20651232 (Version 8)
Quarter: 2023Q1

REPORT INFORMATION
  Report Type: Report from Study
  Country: PR (occurrence: PR)
  Receive Date: 20220329
  Receipt Date: 20230226
  Transmission Date: 20230417
  Serious: Yes (Hospitalization, Other)
  Sender: FDA-Public Use
  Company Number: PR-ABBVIE-22K-131-4335751-00

PATIENT
  Sex: Female
  Weight: 54.431 kg

DRUGS (8)
  1. HUMIRA [Suspect]
     Active Substance: ADALIMUMAB
     Indication: Crohn^s disease
     Dosage: STRENGTH: 40 MILLIGRAM
     Route: 058
     Dates: start: 20201231
  2. HUMIRA [Suspect]
     Active Substance: ADALIMUMAB
  3. PROBIOTICS NOS [Concomitant]
     Active Substance: PROBIOTICS NOS
     Indication: Product used for unknown indication
     Route: 048
  4. ELASOMERAN [Concomitant]
     Active Substance: ELASOMERAN
     Indication: COVID-19 immunisation
     Dosage: 3RD DOSE?ONE IN ONCE
     Route: 030
     Dates: start: 20211025, end: 20211025
  5. ELASOMERAN [Concomitant]
     Active Substance: ELASOMERAN
     Indication: COVID-19 immunisation
     Dosage: 1ST DOSE?ONE IN ONCE
     Route: 030
     Dates: start: 20210403, end: 20210403
  6. ELASOMERAN [Concomitant]
     Active Substance: ELASOMERAN
     Indication: COVID-19 immunisation
     Dosage: 2ND DOSE?ONE IN ONCE
     Route: 030
     Dates: start: 20210501, end: 20210501
  7. ELASOMERAN [Concomitant]
     Active Substance: ELASOMERAN
     Indication: COVID-19 immunisation
     Dosage: 4TH DOSE?ONE IN ONCE
     Route: 030
     Dates: start: 20220402, end: 20220402
  8. DOCUSATE [Concomitant]
     Active Substance: DOCUSATE
     Indication: Constipation
     Dosage: STRENGTH: 240 MILLIGRAM
     Route: 048
     Dates: start: 202201

REACTIONS (11)
  - Vaginal haemorrhage [Recovered/Resolved]
  - Small intestinal stenosis [Recovered/Resolved]
  - Dyschezia [Recovering/Resolving]
  - Gastrointestinal inflammation [Recovering/Resolving]
  - Enterocolitis [Unknown]
  - Gastritis [Recovering/Resolving]
  - Gastrointestinal pain [Recovering/Resolving]
  - Crohn^s disease [Unknown]
  - Constipation [Unknown]
  - Gastrointestinal oedema [Unknown]
  - Constipation [Recovered/Resolved]

NARRATIVE: CASE EVENT DATE: 20220301
